FAERS Safety Report 25723703 (Version 3)
Quarter: 2025Q3

REPORT INFORMATION
  Report Type: Report from Study
  Country: EU (occurrence: EU)
  Receive Date: 20250825
  Receipt Date: 20250916
  Transmission Date: 20251021
  Serious: Yes (Other)
  Sender: NOVARTIS
  Company Number: EU-002147023-NVSC2025DE132130

PATIENT
  Sex: Female
  Weight: 65 kg

DRUGS (2)
  1. KISQALI [Suspect]
     Active Substance: RIBOCICLIB SUCCINATE
     Indication: Hormone receptor positive HER2 negative breast cancer
     Dosage: 400 MG, QD, (21 DAYS DAILY INTAKE, 7 DAYS PAUSE)
     Route: 048
     Dates: start: 20250717
  2. LETROZOLE [Suspect]
     Active Substance: LETROZOLE
     Indication: Hormone receptor positive HER2 negative breast cancer
     Dosage: 2.5 MG, QD (TOTAL DAILY DOSE)
     Route: 048
     Dates: start: 20250717

REACTIONS (3)
  - Polyneuropathy [Not Recovered/Not Resolved]
  - Neutropenia [Not Recovered/Not Resolved]
  - Fatigue [Not Recovered/Not Resolved]

NARRATIVE: CASE EVENT DATE: 20250731
